FAERS Safety Report 14496368 (Version 1)
Quarter: 2018Q1

REPORT INFORMATION
  Report Type: Spontaneous
  Country: CA (occurrence: CA)
  Receive Date: 20180207
  Receipt Date: 20180207
  Transmission Date: 20180509
  Serious: Yes (Death, Other)
  Sender: FDA-Public Use
  Company Number: CA-BIOVITRUM-2018CA0077

PATIENT
  Age: 8 Year
  Sex: Male

DRUGS (14)
  1. CERTOLIZUMAB [Concomitant]
     Active Substance: CERTOLIZUMAB
  2. ANAKINRA [Suspect]
     Active Substance: ANAKINRA
     Indication: AUTOINFLAMMATORY DISEASE
  3. DAPSONE. [Concomitant]
     Active Substance: DAPSONE
  4. SYSTEMIC CORTICOSTEROIDS [Concomitant]
  5. TACROLIMUS. [Concomitant]
     Active Substance: TACROLIMUS
  6. INTRAVENOUS IMMUNOGLOBULIN [Concomitant]
     Active Substance: HUMAN IMMUNOGLOBULIN G
  7. TOCILIZUMAB. [Concomitant]
     Active Substance: TOCILIZUMAB
  8. MESALAMINE. [Concomitant]
     Active Substance: MESALAMINE
  9. AZATHIOPRINE. [Concomitant]
     Active Substance: AZATHIOPRINE
  10. ADALIMUMAB [Concomitant]
     Active Substance: ADALIMUMAB
  11. COLCHICINE. [Concomitant]
     Active Substance: COLCHICINE
  12. METHOTREXATE. [Concomitant]
     Active Substance: METHOTREXATE
  13. INFLIXIMAB [Concomitant]
     Active Substance: INFLIXIMAB
  14. CANAKINUMAB. [Concomitant]
     Active Substance: CANAKINUMAB

REACTIONS (4)
  - Tonsillar ulcer [Fatal]
  - Carotid artery perforation [Fatal]
  - Upper airway obstruction [Fatal]
  - Posterior reversible encephalopathy syndrome [Unknown]
